FAERS Safety Report 25382124 (Version 1)
Quarter: 2025Q2

REPORT INFORMATION
  Report Type: Spontaneous
  Country: FR (occurrence: FR)
  Receive Date: 20250531
  Receipt Date: 20250531
  Transmission Date: 20250717
  Serious: Yes (Death, Hospitalization, Other)
  Sender: AMGEN
  Company Number: FR-AMGEN-FRASP2025101779

PATIENT

DRUGS (1)
  1. FILGRASTIM [Suspect]
     Active Substance: FILGRASTIM
     Indication: Neutropenia
     Route: 065

REACTIONS (16)
  - Death [Fatal]
  - Malignant neoplasm progression [Fatal]
  - Fungal infection [Fatal]
  - Acute respiratory failure [Unknown]
  - Septic shock [Unknown]
  - Respiratory tract infection fungal [Unknown]
  - Respiratory tract infection viral [Unknown]
  - Respiratory moniliasis [Unknown]
  - Differentiation syndrome [Unknown]
  - Engraftment syndrome [Unknown]
  - Pulmonary alveolar haemorrhage [Unknown]
  - Transfusion-related acute lung injury [Unknown]
  - Pulmonary embolism [Unknown]
  - Aspergillus infection [Unknown]
  - Pleural effusion [Unknown]
  - Lung disorder [Unknown]
